FAERS Safety Report 9734366 (Version 3)
Quarter: 2014Q2

REPORT INFORMATION
  Report Type: Report from Study
  Country: GB (occurrence: GB)
  Receive Date: 20131206
  Receipt Date: 20140428
  Transmission Date: 20141212
  Serious: Yes (Hospitalization)
  Sender: FDA-Public Use
  Company Number: GB-ROCHE-1314724

PATIENT
  Age: 81 Year
  Sex: Female

DRUGS (10)
  1. RANIBIZUMAB [Suspect]
     Indication: AGE-RELATED MACULAR DEGENERATION
     Route: 050
     Dates: start: 20121109
  2. RANIBIZUMAB [Suspect]
     Route: 050
     Dates: start: 20130531, end: 201306
  3. RANIBIZUMAB [Suspect]
     Route: 050
     Dates: start: 20130712
  4. RANIBIZUMAB [Suspect]
     Dosage: LAST DOSE OF LUCENTIS BEFORE EVENT WAS RECEIVED ON 13/DEC/2013.
     Route: 050
     Dates: start: 20121201
  5. SIMVASTATIN [Concomitant]
     Route: 065
     Dates: start: 2002
  6. SALBUTAMOL [Concomitant]
     Route: 065
     Dates: start: 1992
  7. BECLOMETASONE [Concomitant]
     Route: 065
     Dates: start: 1992
  8. IPRATROPIUM [Concomitant]
     Route: 065
     Dates: start: 1992
  9. AMLODIPINE [Concomitant]
     Route: 065
     Dates: start: 2002
  10. WARFARIN [Concomitant]

REACTIONS (7)
  - Gastrointestinal carcinoma [Recovered/Resolved]
  - Colon neoplasm [Recovered/Resolved with Sequelae]
  - Left ventricular failure [Recovered/Resolved with Sequelae]
  - Dyspnoea [Recovered/Resolved with Sequelae]
  - Chest pain [Recovered/Resolved]
  - Aortic stenosis [Recovered/Resolved]
  - Bronchiectasis [Recovered/Resolved]
